FAERS Safety Report 10461902 (Version 1)
Quarter: 2014Q3

REPORT INFORMATION
  Report Type: Spontaneous
  Country: US (occurrence: US)
  Receive Date: 20140918
  Receipt Date: 20140918
  Transmission Date: 20150326
  Serious: Yes (Other)
  Sender: FDA-Public Use
  Company Number: US-BAYER-2014-137882

PATIENT
  Age: 20 Year
  Sex: Female

DRUGS (1)
  1. MIRENA [Suspect]
     Active Substance: LEVONORGESTREL
     Indication: MENSTRUAL DISORDER
     Dosage: 20 MCG/24HR, CONT
     Route: 015
     Dates: start: 20140902

REACTIONS (5)
  - Genital haemorrhage [None]
  - Off label use [None]
  - Procedural pain [None]
  - Device dislocation [None]
  - Abdominal pain lower [None]

NARRATIVE: CASE EVENT DATE: 201409
